FAERS Safety Report 20181187 (Version 1)
Quarter: 2021Q4

REPORT INFORMATION
  Report Type: Spontaneous
  Country: US (occurrence: US)
  Receive Date: 20211214
  Receipt Date: 20211214
  Transmission Date: 20220303
  Serious: Yes (Hospitalization, Other)
  Sender: FDA-Public Use
  Company Number: US-SA-SAC20211213000073

PATIENT
  Age: 42 Year
  Sex: Female

DRUGS (8)
  1. PLAVIX [Suspect]
     Active Substance: CLOPIDOGREL BISULFATE
     Dosage: UNK
     Route: 065
  2. HEPARIN [Suspect]
     Active Substance: HEPARIN SODIUM
     Dosage: UNK
  3. ELIQUIS [Concomitant]
     Active Substance: APIXABAN
     Dosage: UNK
  4. APIXABAN [Concomitant]
     Active Substance: APIXABAN
     Indication: Thrombosis
     Dosage: 10 MG, BID
  5. APIXABAN [Concomitant]
     Active Substance: APIXABAN
     Dosage: UNK
     Dates: start: 202103
  6. HECTOROL [Concomitant]
     Active Substance: DOXERCALCIFEROL
     Dosage: UNK
  7. RENVELA [Concomitant]
     Active Substance: SEVELAMER CARBONATE
  8. VITAMINS [Concomitant]
     Active Substance: VITAMINS

REACTIONS (8)
  - Renal neoplasm [Unknown]
  - Spinal disorder [Unknown]
  - Seizure [Unknown]
  - Rhinorrhoea [Unknown]
  - Cerebrovascular accident [Unknown]
  - Thrombosis [Unknown]
  - Uterine haemorrhage [Unknown]
  - Haemorrhagic cyst [Unknown]

NARRATIVE: CASE EVENT DATE: 20210902
